FAERS Safety Report 23258170 (Version 4)
Quarter: 2024Q1

REPORT INFORMATION
  Report Type: Spontaneous
  Country: GB (occurrence: GB)
  Receive Date: 20231204
  Receipt Date: 20240129
  Transmission Date: 20240409
  Serious: Yes (Hospitalization, Other)
  Sender: FDA-Public Use
  Company Number: GB-BEH-2023165988

PATIENT
  Sex: Female

DRUGS (1)
  1. HIZENTRA [Suspect]
     Active Substance: HUMAN IMMUNOGLOBULIN G
     Indication: Product used for unknown indication
     Dosage: 6 GRAM, QW
     Route: 058

REACTIONS (3)
  - Lower respiratory tract infection [Unknown]
  - Malaise [Unknown]
  - Lower respiratory tract infection [Unknown]
